FAERS Safety Report 4530351-1 (Version None)
Quarter: 2004Q4

REPORT INFORMATION
  Report Type: 
  Country: None (occurrence: None)
  Receive Date: 20041215
  Receipt Date: 20041203
  Transmission Date: 20050328
  Serious: Yes (Death)
  Sender: FDA-Public Use
  Company Number: 2004073722

PATIENT
  Age: 74 Year
  Sex: Female
  Weight: 65 kg

DRUGS (8)
  1. VFEND [Suspect]
     Indication: FEBRILE NEUTROPENIA
     Dosage: SEE IMAGE
     Route: 042
     Dates: start: 20040303, end: 20040309
  2. VFEND [Suspect]
     Indication: FEBRILE NEUTROPENIA
     Dosage: SEE IMAGE
     Route: 042
     Dates: start: 20040310, end: 20040312
  3. PANTOPRAZOLE SODIUM [Concomitant]
  4. PRIMAXIN [Concomitant]
  5. LINEZOLID (LINEZOLID) [Concomitant]
  6. MOXIFLOXACIN HCL [Concomitant]
  7. ACYCLOVIR [Concomitant]
  8. CLARITHROMYCIN [Concomitant]

REACTIONS (2)
  - CANDIDA SEPSIS [None]
  - MULTI-ORGAN FAILURE [None]
